FAERS Safety Report 26112172 (Version 1)
Quarter: 2025Q4

REPORT INFORMATION
  Report Type: Spontaneous
  Country: GB (occurrence: GB)
  Receive Date: 20251202
  Receipt Date: 20251202
  Transmission Date: 20260117
  Serious: Yes (Other)
  Sender: TORRENT PHARMA INC.
  Company Number: None

PATIENT
  Age: 23 Year

DRUGS (18)
  1. MONTELUKAST [Suspect]
     Active Substance: MONTELUKAST
     Indication: Product used for unknown indication
     Dosage: MONTELUKAST 10 MG TABLETS ONE TO BE TAKEN AT NIGHT
     Route: 065
  2. Avamys 27.5 mcg/spray Nasal Spray [Concomitant]
     Indication: Product used for unknown indication
     Dosage: 1 SPRAY EACH NOSTRIL DAILY OR AS DIRECTED BY ASTHMA CLINIC-Y AUTHORISED: 31-MAY-2024
     Route: 065
  3. CLOBAZAM [Concomitant]
     Active Substance: CLOBAZAM
     Indication: Product used for unknown indication
     Dosage: ONE TO BE TAKEN THREE TIMES A DAY
     Route: 065
  4. DOCUSATE [Concomitant]
     Active Substance: DOCUSATE
     Indication: Product used for unknown indication
     Dosage: TAKE TWO BD
     Route: 065
  5. FERROUS FUMARATE [Concomitant]
     Active Substance: FERROUS FUMARATE
     Indication: Product used for unknown indication
     Dosage: ONE TO BE TAKEN EACH DAY
     Route: 065
  6. FEXOFENADINE [Concomitant]
     Active Substance: FEXOFENADINE HYDROCHLORIDE
     Indication: Product used for unknown indication
     Dosage: ONE TO BE TAKEN EACH DAY
     Route: 065
  7. FOLIC ACID [Concomitant]
     Active Substance: FOLIC ACID
     Indication: Product used for unknown indication
     Dosage: ONE TO BE TAKEN EACH DAY-OM
     Route: 065
  8. Hux-D3 [Concomitant]
     Indication: Product used for unknown indication
     Dosage: TAKE ONE CAPSULE ON THE SAME DAY EACH MONTH.
     Route: 065
  9. LAMOTRIGINE [Concomitant]
     Active Substance: LAMOTRIGINE
     Indication: Product used for unknown indication
     Dosage: ONE BD- Y
     Route: 065
  10. LAMOTRIGINE [Concomitant]
     Active Substance: LAMOTRIGINE
     Indication: Product used for unknown indication
     Dosage: ONE TO BE TAKEN EACH DAY ?AT NIGHT-Y
     Route: 065
  11. LORAZEPAM [Concomitant]
     Active Substance: LORAZEPAM
     Indication: Muscle spasms
     Dosage: ONE PRN MAX QDS FOR MUSCLE SPASMS AND ?THROAT TIGHNESS- PRN
     Route: 065
  12. NICOTINE [Concomitant]
     Active Substance: NICOTINE
     Indication: Product used for unknown indication
     Dosage: DOSE MOUTHSPRAY FRESHMINT TO BE USED AS DIRECTED-Y
     Route: 065
  13. NICOTINE [Concomitant]
     Active Substance: NICOTINE
     Indication: Product used for unknown indication
     Dosage: APPLY ONE PATCH EACH DAY AS DIRECTED- Y14-APR-2025
     Route: 065
  14. QUETIAPINE [Concomitant]
     Active Substance: QUETIAPINE
     Indication: Product used for unknown indication
     Dosage: ONE TO BE TAKEN TWICE A DAY- NOT TAKING HAS ?BEEN FOR OVER A YEAR- GP AWASRE
     Route: 065
  15. ALBUTEROL [Concomitant]
     Active Substance: ALBUTEROL
     Indication: Product used for unknown indication
     Dosage: TWO PUFFS AS REQUIRED- Y AUTHORISED 20-AUG-2025
     Route: 065
  16. SERTRALINE [Concomitant]
     Active Substance: SERTRALINE HYDROCHLORIDE
     Indication: Product used for unknown indication
     Dosage: TWO TABLETS ?ONCE PER DAY- NOT TAKING AND HASN^T BEEN FOR OVER A YEAR -GP AWARE
     Route: 065
  17. THIAMINE [Concomitant]
     Active Substance: THIAMINE
     Indication: Product used for unknown indication
     Dosage: ONE TO BE TAKEN THREE TIMES A DAY
     Route: 065
  18. BECLOMETHASONE DIPROPIONATE\FORMOTEROL FUMARATE\GLYCOPYRROLATE [Concomitant]
     Active Substance: BECLOMETHASONE DIPROPIONATE\FORMOTEROL FUMARATE\GLYCOPYRROLATE
     Indication: Product used for unknown indication
     Dosage: TWO PUFFS TO ?BE INHALED TWICE A DAY -Y 29-SEP-2025
     Route: 055

REACTIONS (1)
  - Bipolar disorder [Unknown]
